FAERS Safety Report 10926068 (Version 2)
Quarter: 2015Q2

REPORT INFORMATION
  Report Type: Spontaneous
  Country: US (occurrence: US)
  Receive Date: 20150318
  Receipt Date: 20150522
  Transmission Date: 20150821
  Serious: Yes (Hospitalization, Other)
  Sender: FDA-Public Use
  Company Number: US-PFIZER INC-2015091972

PATIENT
  Age: 68 Year
  Sex: Female
  Weight: 76 kg

DRUGS (38)
  1. BORAGE OIL [Concomitant]
     Active Substance: BORAGE OIL
     Indication: MENOPAUSE
     Dosage: 500 MG, 2X/DAY
  2. ZINC [Concomitant]
     Active Substance: ZINC\ZINC CHLORIDE
     Dosage: UNK
  3. GARLIC. [Concomitant]
     Active Substance: GARLIC
     Dosage: UNK
     Route: 048
  4. COCONUT OIL [Concomitant]
     Active Substance: COCONUT OIL
     Dosage: UNK, 2X/DAY (2 GEL CAPS)
     Route: 048
  5. ASPIRIN. [Concomitant]
     Active Substance: ASPIRIN
     Dosage: 81 MG, 1X/DAY
     Route: 048
  6. BILBERRY [Concomitant]
     Active Substance: BILBERRY
     Dosage: 1000 MG, 2X/DAY
     Route: 048
  7. EVENING PRIMROSE OIL [Concomitant]
     Active Substance: EVENING PRIMROSE OIL
     Indication: MENOPAUSE
     Dosage: 500 MG, 2X/DAY
     Route: 048
  8. ZEAXANTHIN [Concomitant]
     Active Substance: ZEAXANTHIN
     Indication: EYE DISORDER
     Dosage: UNK
     Route: 048
  9. CHROMIUM/CINNAMON [Concomitant]
     Indication: DIABETES MELLITUS
  10. VITAMIN C [Concomitant]
     Active Substance: ASCORBIC ACID
     Dosage: 2000 MG, 2X/DAY
     Route: 048
  11. MELATONIN [Concomitant]
     Active Substance: MELATONIN
     Indication: INSOMNIA
     Dosage: 1 MG, UNK
     Route: 048
  12. FLAXSEED [Concomitant]
     Active Substance: FLAX SEED
     Dosage: 1000 MG, UNK
     Route: 048
  13. COENZYME Q10 [Concomitant]
     Active Substance: UBIDECARENONE
     Dosage: 200 MG, 1X/DAY
  14. CHLORTHALIDONE. [Concomitant]
     Active Substance: CHLORTHALIDONE
     Indication: BLOOD PRESSURE ABNORMAL
     Dosage: 25 MG, 1X/DAY
     Route: 048
  15. GLUCOSAMINE [Concomitant]
     Active Substance: GLUCOSAMINE
     Indication: LOWER LIMB FRACTURE
     Dosage: UNK
     Route: 048
  16. GRAPE SEED [Concomitant]
     Dosage: UNK
     Route: 048
  17. VITAMIN D3 [Concomitant]
     Active Substance: CHOLECALCIFEROL
     Dosage: 5000 IU, 1X/DAY
     Route: 048
  18. TURMERIC [Concomitant]
     Active Substance: TURMERIC
     Dosage: UNK
     Route: 048
  19. VITAMIN B12 [Concomitant]
     Active Substance: CYANOCOBALAMIN
     Dosage: 100 MG, 1X/DAY
  20. LISINOPRIL. [Concomitant]
     Active Substance: LISINOPRIL
     Indication: BLOOD PRESSURE
     Dosage: 5 MG, 1X/DAY
     Route: 048
  21. BIOTIN [Concomitant]
     Active Substance: BIOTIN
     Indication: HAIR DISORDER
     Dosage: UNK
     Route: 048
  22. NATURE MADE CALCIUM WITH VITAMIN D [Concomitant]
     Dosage: UNK
     Route: 048
  23. CHROMIUM/CINNAMON [Concomitant]
     Indication: BLOOD GLUCOSE FLUCTUATION
     Dosage: 500 MG, 2X/DAY
  24. AROMASIN [Suspect]
     Active Substance: EXEMESTANE
     Indication: BREAST CANCER
     Dosage: UNK
     Dates: start: 2013, end: 2014
  25. METFORMIN [Concomitant]
     Active Substance: METFORMIN HYDROCHLORIDE
     Indication: DIABETES MELLITUS
     Dosage: 500 MG, 3X/DAY
     Route: 048
  26. MOVE FREE MAINTAINS + REPAIRS [Concomitant]
     Indication: LOWER LIMB FRACTURE
     Dosage: UNK
     Route: 048
  27. LUTEIN [Concomitant]
     Active Substance: LUTEIN
     Indication: EYE DISORDER
     Dosage: UNK
     Route: 048
  28. FISH OIL [Concomitant]
     Active Substance: FISH OIL
     Dosage: 600 MG, UNK
     Route: 048
  29. COD LIVER OIL [Concomitant]
     Active Substance: COD LIVER OIL
     Dosage: UNK
     Route: 048
  30. TYLENOL EXTRA STRENGTH [Concomitant]
     Active Substance: ACETAMINOPHEN
     Dosage: UNK, AS NEEDED (OFF AND ON)
     Route: 048
  31. CRANBERRY. [Concomitant]
     Active Substance: CRANBERRY
     Indication: UROGENITAL DISORDER
     Dosage: 84 MG, UNK
     Route: 048
  32. FLAXSEED [Concomitant]
     Active Substance: FLAX SEED
     Indication: MENOPAUSE
     Dosage: 884 MG, 2X/DAY
  33. GINKO BILOBA [Concomitant]
     Active Substance: GINKGO
     Indication: MEMORY IMPAIRMENT
     Dosage: 120 MG, 1X/DAY
  34. ALPHA LIPOIC ACID [Concomitant]
     Active Substance: .ALPHA.-LIPOIC ACID
     Indication: DIABETES MELLITUS
     Dosage: UNK, 2X/DAY
  35. MAGNESIUM [Concomitant]
     Active Substance: MAGNESIUM
     Dosage: UNK
  36. BLACK COHOSH EXTRACT [Concomitant]
     Indication: MENOPAUSE
  37. AROMASIN [Suspect]
     Active Substance: EXEMESTANE
     Dosage: 25 MG, 1X/DAY
     Route: 048
     Dates: start: 20141201
  38. VITAMIN C [Concomitant]
     Active Substance: ASCORBIC ACID
     Dosage: 1000 MG,SEVERAL A DAY
     Route: 048

REACTIONS (5)
  - Breast mass [Unknown]
  - Drug dose omission [Unknown]
  - Cough [Unknown]
  - Nasopharyngitis [Unknown]
  - Cataract [Recovered/Resolved]

NARRATIVE: CASE EVENT DATE: 2014
